FAERS Safety Report 4639799-8 (Version None)
Quarter: 2005Q2

REPORT INFORMATION
  Report Type: 
  Country: None (occurrence: None)
  Receive Date: 20050328
  Receipt Date: 20050131
  Transmission Date: 20051028
  Serious: No
  Sender: FDA-Public Use
  Company Number: USA050187709

PATIENT
  Age: 7 Year
  Sex: Male
  Weight: 23 kg

DRUGS (2)
  1. STRATTERA [Suspect]
     Indication: ATTENTION DEFICIT/HYPERACTIVITY DISORDER
     Dosage: 25 MG DAY
     Dates: start: 20050106, end: 20050129
  2. HOMEOPATHIC MEDICATION [Concomitant]

REACTIONS (8)
  - ABNORMAL BEHAVIOUR [None]
  - ANOREXIA [None]
  - FATIGUE [None]
  - PHARYNGOLARYNGEAL PAIN [None]
  - RASH [None]
  - RESPIRATORY TRACT CONGESTION [None]
  - SOMNOLENCE [None]
  - SPEECH DISORDER [None]
